FAERS Safety Report 16001497 (Version 2)
Quarter: 2019Q1

REPORT INFORMATION
  Report Type: Spontaneous
  Country: US (occurrence: US)
  Receive Date: 20190225
  Receipt Date: 20190301
  Transmission Date: 20190418
  Serious: Yes (Other)
  Sender: FDA-Public Use
  Company Number: US-ASTRAZENECA-2018SF26133

PATIENT
  Age: 19110 Day
  Sex: Female

DRUGS (19)
  1. NIFEDICAL XL [Concomitant]
     Active Substance: NIFEDIPINE
  2. LISINOPRIL. [Concomitant]
     Active Substance: LISINOPRIL
  3. PANTOPRAZOLE [Concomitant]
     Active Substance: PANTOPRAZOLE
     Route: 065
     Dates: start: 20150613
  4. ATORVASTATIN [Concomitant]
     Active Substance: ATORVASTATIN
  5. GLIPIZIDE. [Concomitant]
     Active Substance: GLIPIZIDE
  6. HYDRALAZINE [Concomitant]
     Active Substance: HYDRALAZINE HYDROCHLORIDE
  7. ALLOPURINOL. [Concomitant]
     Active Substance: ALLOPURINOL
  8. NEXIUM [Suspect]
     Active Substance: ESOMEPRAZOLE MAGNESIUM
     Route: 048
     Dates: start: 201106, end: 201211
  9. METOPROLOL. [Concomitant]
     Active Substance: METOPROLOL
  10. NEXIUM [Suspect]
     Active Substance: ESOMEPRAZOLE MAGNESIUM
     Route: 048
     Dates: start: 20110602
  11. PREVACID 24 HR [Suspect]
     Active Substance: LANSOPRAZOLE
     Route: 065
     Dates: start: 201106, end: 201211
  12. PRILOSEC [Concomitant]
     Active Substance: OMEPRAZOLE MAGNESIUM
     Route: 048
     Dates: start: 20120727
  13. NEXIUM 24HR [Suspect]
     Active Substance: ESOMEPRAZOLE MAGNESIUM
     Route: 048
     Dates: start: 201106, end: 201211
  14. SPIRONOLACTONE. [Concomitant]
     Active Substance: SPIRONOLACTONE
  15. TRAMADOL HYDROCHLORIDE. [Concomitant]
     Active Substance: TRAMADOL HYDROCHLORIDE
  16. FUROSEMIDE. [Concomitant]
     Active Substance: FUROSEMIDE
  17. TRADJENTA [Concomitant]
     Active Substance: LINAGLIPTIN
  18. TAMIFLU [Concomitant]
     Active Substance: OSELTAMIVIR PHOSPHATE
  19. APIDRA [Concomitant]
     Active Substance: INSULIN GLULISINE

REACTIONS (5)
  - Acute kidney injury [Unknown]
  - Renal failure [Unknown]
  - Chronic kidney disease [Unknown]
  - End stage renal disease [Unknown]
  - Nephropathy [Unknown]

NARRATIVE: CASE EVENT DATE: 20110206
